FAERS Safety Report 6030935-8 (Version None)
Quarter: 2009Q1

REPORT INFORMATION
  Report Type: 
  Country: None (occurrence: None)
  Receive Date: 20090106
  Receipt Date: 20081222
  Transmission Date: 20090719
  Serious: Yes (Hospitalization)
  Sender: FDA-Public Use
  Company Number: KV200801373

PATIENT
  Age: 64 Year
  Sex: Female
  Weight: 95.2 kg

DRUGS (4)
  1. MORPHINE SULFATE [Suspect]
     Indication: ARTHRALGIA
     Dosage: 30 MG, BID, ORAL
     Route: 048
     Dates: start: 20070101, end: 20081101
  2. AMLODIPINE [Concomitant]
  3. LEVOTHYROXINE (LEVOTHRYROXINE) [Concomitant]
  4. AMBIEN [Concomitant]

REACTIONS (3)
  - DIARRHOEA [None]
  - DYSKINESIA [None]
  - PRODUCT QUALITY ISSUE [None]
